FAERS Safety Report 9925906 (Version 1)
Quarter: 2014Q1

REPORT INFORMATION
  Report Type: Spontaneous
  Country: US (occurrence: US)
  Receive Date: 20140226
  Receipt Date: 20140226
  Transmission Date: 20141002
  Serious: No
  Sender: FDA-Public Use
  Company Number: US-B.I. PHARMACEUTICALS,INC./RIDGEFIELD-2014-BI-07416BP

PATIENT
  Sex: Male
  Weight: 82 kg

DRUGS (2)
  1. COMBIVENT [Suspect]
     Indication: HYPERSENSITIVITY
     Dosage: DOSE PER APPLICATION: 18 MCG / 103 MCG; DAILY DOSE: 72MCG/412MCG
     Route: 055
     Dates: start: 1996, end: 201310
  2. COMBIVENT [Suspect]
     Indication: ASTHMA

REACTIONS (1)
  - Off label use [Unknown]
